FAERS Safety Report 9854802 (Version 2)
Quarter: 2014Q1

REPORT INFORMATION
  Report Type: Spontaneous
  Country: US (occurrence: US)
  Receive Date: 20140130
  Receipt Date: 20140130
  Transmission Date: 20141002
  Serious: Yes (Other)
  Sender: FDA-Public Use
  Company Number: 2013SP007374

PATIENT
  Age: 65 Year
  Sex: Female

DRUGS (1)
  1. VANCOMYCIN [Suspect]
     Indication: CLOSTRIDIUM DIFFICILE INFECTION

REACTIONS (2)
  - Drug ineffective [Unknown]
  - Clostridium difficile infection [Recovering/Resolving]
